FAERS Safety Report 8780721 (Version 2)
Quarter: 2012Q4

REPORT INFORMATION
  Report Type: Report from Study
  Country: US (occurrence: US)
  Receive Date: 20120913
  Receipt Date: 20120913
  Transmission Date: 20130627
  Serious: Yes (Death, Hospitalization)
  Sender: FDA-Public Use
  Company Number: US-ROCHE-1071716

PATIENT
  Age: 60 Year
  Sex: Female
  Weight: 117.8 kg

DRUGS (19)
  1. XELODA [Suspect]
     Indication: BREAST CANCER
     Dosage: oral twice daily Dl to 014 of 21-day cycle
     Route: 048
     Dates: start: 20120507, end: 20120509
  2. VASCULAR ENDOTHELIAL GROWTH FACTOR INHIBITOR NOS [Suspect]
     Indication: BREAST CANCER
     Dosage: on 01 and 08 of 21-day cycle
     Route: 042
     Dates: start: 20120507, end: 20120507
  3. NEURONTIN [Concomitant]
     Route: 065
     Dates: start: 2009
  4. FENTANYL [Concomitant]
     Route: 065
     Dates: start: 201112
  5. HYDROMORPHONE [Concomitant]
     Route: 065
     Dates: start: 201112
  6. SENOKOT-S [Concomitant]
     Route: 065
     Dates: start: 201112
  7. LASIX [Concomitant]
     Route: 065
     Dates: start: 2008
  8. FLONASE [Concomitant]
     Route: 065
     Dates: start: 2009
  9. SYNTHROID [Concomitant]
     Route: 065
     Dates: start: 1993
  10. RANITIDINE [Concomitant]
     Route: 065
     Dates: start: 2002
  11. LISINOPRIL [Concomitant]
     Route: 065
     Dates: start: 201203
  12. TOPROL [Concomitant]
     Route: 065
     Dates: start: 1993
  13. ASPIRIN [Concomitant]
     Route: 065
     Dates: start: 1993
  14. CLARITIN-D [Concomitant]
     Route: 065
     Dates: start: 2009
  15. PROMETHAZINE [Concomitant]
     Route: 065
     Dates: start: 2009
  16. MULTIVITAMIN [Concomitant]
     Route: 065
     Dates: start: 2009
  17. CALCIUM [Concomitant]
     Route: 065
     Dates: start: 201201
  18. XGEVA [Concomitant]
     Route: 065
     Dates: start: 201201
  19. CLONIDINE [Concomitant]

REACTIONS (4)
  - Dehydration [Recovered/Resolved]
  - Renal failure [Recovered/Resolved]
  - Respiratory failure [Fatal]
  - Pulmonary oedema [Unknown]
